FAERS Safety Report 8533692-6 (Version None)
Quarter: 2012Q3

REPORT INFORMATION
  Report Type: 
  Country: None (occurrence: None)
  Receive Date: 20120724
  Receipt Date: 20120716
  Transmission Date: 20120928
  Serious: Yes (Life-Threatening, Hospitalization, Other)
  Sender: FDA-Public Use
  Company Number: US-B.I. PHARMACEUTICALS,INC./RIDGEFIELD-2012-EU-03619GD

PATIENT
  Age: 70 Year
  Sex: Male
  Weight: 109 kg

DRUGS (4)
  1. ASPIRIN [Suspect]
     Indication: ANTIPLATELET THERAPY
     Dosage: 81 MG
  2. PANTOPRAZOLE [Concomitant]
     Dosage: 40 MG
  3. DABIGATRAN [Suspect]
     Indication: CEREBROVASCULAR ACCIDENT PROPHYLAXIS
     Dosage: 300 MG
     Route: 048
     Dates: start: 20110301
  4. DABIGATRAN [Suspect]
     Indication: ATRIAL FIBRILLATION

REACTIONS (13)
  - RESPIRATORY FAILURE [None]
  - SHOCK [None]
  - RENAL FAILURE ACUTE [None]
  - CARDIAC TAMPONADE [None]
  - COAGULOPATHY [None]
  - HAEMATOCHEZIA [None]
  - HYPOTENSION [None]
  - PLEURAL EFFUSION [None]
  - FATIGUE [None]
  - COUGH [None]
  - PERICARDIAL HAEMORRHAGE [None]
  - PERICARDIAL EFFUSION [None]
  - HAEMOGLOBIN DECREASED [None]
